FAERS Safety Report 24634075 (Version 1)
Quarter: 2024Q4

REPORT INFORMATION
  Report Type: Spontaneous
  Country: US (occurrence: US)
  Receive Date: 20241119
  Receipt Date: 20241119
  Transmission Date: 20250115
  Serious: Yes (Other)
  Sender: NOVARTIS
  Company Number: US-002147023-NVSC2024US221711

PATIENT
  Sex: Male

DRUGS (1)
  1. PLUVICTO [Suspect]
     Active Substance: LUTETIUM LU-177 VIPIVOTIDE TETRAXETAN
     Indication: Prostate cancer
     Dosage: 7.4 GBQ (DOSED AT 6 WEEKS)
     Route: 042
     Dates: start: 20240720, end: 20241025

REACTIONS (1)
  - Humerus fracture [Unknown]

NARRATIVE: CASE EVENT DATE: 20241015
